FAERS Safety Report 25465589 (Version 1)
Quarter: 2025Q2

REPORT INFORMATION
  Report Type: Spontaneous
  Country: US (occurrence: None)
  Receive Date: 20250623
  Receipt Date: 20250623
  Transmission Date: 20250716
  Serious: No
  Sender: UMEDICA LABS
  Company Number: US-Umedica-000673

PATIENT
  Age: 75 Year
  Sex: Male

DRUGS (1)
  1. TADALAFIL [Suspect]
     Active Substance: TADALAFIL
     Indication: Product used for unknown indication
     Dosage: RECEIVED FOR SEVERAL MONTHS

REACTIONS (1)
  - Drug ineffective [Unknown]
